FAERS Safety Report 5066197-8 (Version None)
Quarter: 2006Q3

REPORT INFORMATION
  Report Type: 
  Country: None (occurrence: None)
  Receive Date: 20060703
  Receipt Date: 20060324
  Transmission Date: 20061208
  Serious: Yes (Other)
  Sender: FDA-Public Use
  Company Number: ENTC2006-0098

PATIENT
  Age: 80 Year
  Sex: Female

DRUGS (1)
  1. STALEVO 50 [Suspect]
     Indication: PARKINSON'S DISEASE
     Dosage: 200 MG, 2 IN 1 D, ORAL
     Route: 048
     Dates: start: 20060301

REACTIONS (4)
  - JOINT STIFFNESS [None]
  - MASKED FACIES [None]
  - STARING [None]
  - TREMOR [None]
